FAERS Safety Report 11795643 (Version 1)
Quarter: 2015Q4

REPORT INFORMATION
  Report Type: Spontaneous
  Country: US (occurrence: US)
  Receive Date: 20151202
  Receipt Date: 20151202
  Transmission Date: 20160305
  Serious: Yes (Other)
  Sender: FDA-Public Use
  Company Number: GXBR2015US000976

PATIENT
  Sex: Male
  Weight: 72.56 kg

DRUGS (7)
  1. AMOXICILLIN AND CLAVULANATE POTASSIUM TABLETS USP [Suspect]
     Active Substance: AMOXICILLIN\CLAVULANATE POTASSIUM
     Indication: SINUSITIS
     Dosage: 875MG AMOXICILLIN 125MG CLAVULANATE, BID
     Route: 048
     Dates: start: 20150305, end: 20150312
  2. ATIVAN [Concomitant]
     Active Substance: LORAZEPAM
     Indication: COMPLEX PARTIAL SEIZURES
     Dosage: UNK MG, UNK
  3. COREG [Concomitant]
     Active Substance: CARVEDILOL
     Indication: CARDIAC FAILURE
     Dosage: UNK MG, UNK
  4. LISDEXAMFETAMINE [Concomitant]
     Active Substance: LISDEXAMFETAMINE
     Indication: ATTENTION DEFICIT/HYPERACTIVITY DISORDER
     Dosage: UNK DF, UNK
  5. TEGRETOL [Concomitant]
     Active Substance: CARBAMAZEPINE
     Indication: COMPLEX PARTIAL SEIZURES
     Dosage: UNK MG, UNK
  6. LISDEXAMFETAMINE [Concomitant]
     Active Substance: LISDEXAMFETAMINE
     Indication: MEMORY IMPAIRMENT
  7. PREDNISONE. [Concomitant]
     Active Substance: PREDNISONE
     Indication: PRODUCT USED FOR UNKNOWN INDICATION
     Dosage: UNK DF, UNK

REACTIONS (5)
  - Aphasia [Recovered/Resolved]
  - Confusional state [Recovered/Resolved]
  - Seizure [Unknown]
  - Loss of consciousness [Recovered/Resolved]
  - Memory impairment [Recovered/Resolved]
